FAERS Safety Report 22870337 (Version 2)
Quarter: 2023Q4

REPORT INFORMATION
  Report Type: Spontaneous
  Country: JP (occurrence: JP)
  Receive Date: 20230827
  Receipt Date: 20231203
  Transmission Date: 20240110
  Serious: Yes (Other)
  Sender: FDA-Public Use
  Company Number: JP-TAKEDA-2023TJP011122AA

PATIENT
  Age: 5 Decade
  Sex: Female

DRUGS (1)
  1. ENTYVIO [Suspect]
     Active Substance: VEDOLIZUMAB
     Indication: Crohn^s disease
     Dosage: 300 MILLIGRAM, Q8WEEKS
     Route: 041
     Dates: start: 20200220

REACTIONS (3)
  - Intestinal fistula [Not Recovered/Not Resolved]
  - Crohn^s disease [Unknown]
  - Therapeutic product effect incomplete [Unknown]
